FAERS Safety Report 6391832-1 (Version None)
Quarter: 2009Q4

REPORT INFORMATION
  Report Type: 
  Country: None (occurrence: None)
  Receive Date: 20091005
  Receipt Date: 20090915
  Transmission Date: 20100525
  Serious: Yes (Hospitalization, Other)
  Sender: FDA-Public Use
  Company Number: 230158K09DEU

PATIENT
  Age: 53 Year
  Sex: Female
  Weight: 62 kg

DRUGS (1)
  1. REBIF [Suspect]
     Indication: MULTIPLE SCLEROSIS
     Dosage: 44, 3 IN 1 WEEKS, SUBCUTANEOUS
     Route: 058

REACTIONS (5)
  - ABDOMINAL WALL ABSCESS [None]
  - CELLULITIS [None]
  - EXOSTOSIS [None]
  - INJECTION SITE INFECTION [None]
  - METAPLASIA [None]
